FAERS Safety Report 4448320-9 (Version None)
Quarter: 2004Q3

REPORT INFORMATION
  Report Type: 
  Country: None (occurrence: None)
  Receive Date: 20040913
  Receipt Date: 20040826
  Transmission Date: 20050211
  Serious: Yes (Hospitalization)
  Sender: FDA-Public Use
  Company Number: 2004230296HK

PATIENT
  Age: 62 Year
  Sex: Female
  Weight: 77.5 kg

DRUGS (5)
  1. PHARMORUBICIN (EPIRUBICIN HYDROCHLORIDE POWDER, STERILE [Suspect]
     Indication: BREAST CANCER
     Dosage: 177 MG CYCLIC IV
     Route: 042
     Dates: start: 20040811
  2. FLUOROURACIL [Suspect]
     Indication: BREAST CANCER
     Dosage: 885 MG CYCLIC IV
     Route: 042
     Dates: start: 20040811
  3. CYCLOPHOSPHAMIDE [Suspect]
     Indication: BREAST CANCER
     Dosage: 885 MG CYCLIC IV
     Route: 042
     Dates: start: 20040811
  4. INDAPAMIDE [Concomitant]
  5. HIRUDOID (HEPARINOID) [Concomitant]

REACTIONS (4)
  - EPIGASTRIC DISCOMFORT [None]
  - HYPOKALAEMIA [None]
  - NAUSEA [None]
  - NEUTROPENIA [None]
